FAERS Safety Report 20882272 (Version 1)
Quarter: 2022Q2

REPORT INFORMATION
  Report Type: Spontaneous
  Country: IN (occurrence: IN)
  Receive Date: 20220527
  Receipt Date: 20220527
  Transmission Date: 20220721
  Serious: Yes (Other)
  Sender: FDA-Public Use
  Company Number: IN-SUN PHARMACEUTICAL INDUSTRIES LTD-2022R1-338194

PATIENT
  Age: 22 Year
  Sex: Female

DRUGS (1)
  1. SOTRET [Suspect]
     Active Substance: ISOTRETINOIN
     Indication: Acne
     Dosage: UNK (TOTAL DOSAGE-30, 1 CAPSULE PER DAY)
     Route: 048
     Dates: start: 20220408, end: 20220508

REACTIONS (4)
  - Suicidal ideation [Unknown]
  - Depression [Unknown]
  - Decreased appetite [Unknown]
  - Abdominal pain upper [Unknown]
